FAERS Safety Report 6032162-7 (Version None)
Quarter: 2009Q1

REPORT INFORMATION
  Report Type: 
  Country: None (occurrence: None)
  Receive Date: 20090107
  Receipt Date: 20081210
  Transmission Date: 20090719
  Serious: Yes (Hospitalization)
  Sender: FDA-Public Use
  Company Number: 2008BM000233

PATIENT
  Age: 10 Year
  Sex: Male
  Weight: 17.6 kg

DRUGS (3)
  1. NAGLAZYME [Suspect]
     Indication: MUCOPOLYSACCHARIDOSIS VI
     Dosage: 15 MG;QW;IVDRP
     Route: 041
     Dates: start: 20080918
  2. ACETAMINOPHEN [Concomitant]
  3. DEXCHLORPHENIRAMINE [Concomitant]

REACTIONS (1)
  - PNEUMONIA [None]
